FAERS Safety Report 8231022-0 (Version None)
Quarter: 2012Q1

REPORT INFORMATION
  Report Type: 
  Country: None (occurrence: None)
  Receive Date: 20120323
  Receipt Date: 20120319
  Transmission Date: 20120608
  Serious: Yes (Other)
  Sender: FDA-Public Use
  Company Number: US-PFIZER INC-2012071696

PATIENT
  Sex: Female
  Weight: 86.2 kg

DRUGS (3)
  1. LYRICA [Suspect]
     Indication: FIBROMYALGIA
     Dosage: 25 MG, 1X/DAY
     Route: 048
     Dates: start: 20110101, end: 20110101
  2. EFFEXOR [Concomitant]
     Dosage: UNK
  3. PREMARIN [Concomitant]
     Dosage: UNK

REACTIONS (9)
  - NERVOUS SYSTEM DISORDER [None]
  - NAUSEA [None]
  - AGITATION [None]
  - FEELING ABNORMAL [None]
  - MENTAL IMPAIRMENT [None]
  - DISTURBANCE IN ATTENTION [None]
  - ANXIETY [None]
  - HEADACHE [None]
  - DEPRESSION [None]
